FAERS Safety Report 8354054-0 (Version None)
Quarter: 2012Q2

REPORT INFORMATION
  Report Type: 
  Country: None (occurrence: None)
  Receive Date: 20120511
  Receipt Date: 20120502
  Transmission Date: 20120825
  Serious: Yes (Other)
  Sender: FDA-Public Use
  Company Number: FR-GENZYME-CLOF-1002138

PATIENT

DRUGS (9)
  1. CYTARABINE [Suspect]
     Indication: ACUTE MYELOID LEUKAEMIA
     Dosage: 1 G/M2, QDX5
     Route: 065
     Dates: start: 20110916, end: 20110920
  2. CYCLOPHOSPHAMIDE [Suspect]
     Indication: ACUTE MYELOID LEUKAEMIA
     Dosage: 60 MG/KG, ONCE
     Route: 065
  3. CYCLOPHOSPHAMIDE [Suspect]
     Indication: BONE MARROW CONDITIONING REGIMEN
  4. CYCLOSPORINE [Concomitant]
     Indication: PROPHYLAXIS AGAINST GRAFT VERSUS HOST DISEASE
     Dosage: UNK
     Route: 065
  5. EVOLTRA [Suspect]
     Indication: BONE MARROW CONDITIONING REGIMEN
  6. THYMOGLOBULIN [Suspect]
     Indication: BONE MARROW CONDITIONING REGIMEN
  7. CYTARABINE [Suspect]
     Indication: BONE MARROW CONDITIONING REGIMEN
  8. EVOLTRA [Suspect]
     Indication: ACUTE MYELOID LEUKAEMIA
     Dosage: 30 MG/M2, QDX5
     Route: 065
     Dates: start: 20110916, end: 20110920
  9. THYMOGLOBULIN [Suspect]
     Indication: ACUTE MYELOID LEUKAEMIA
     Dosage: 2.5 MG/KG, QD
     Route: 065

REACTIONS (1)
  - CYSTITIS HAEMORRHAGIC [None]
